FAERS Safety Report 9328266 (Version 2)
Quarter: 2013Q2

REPORT INFORMATION
  Report Type: Spontaneous
  Country: US (occurrence: US)
  Receive Date: 20130604
  Receipt Date: 20130620
  Transmission Date: 20140414
  Serious: Yes (Other)
  Sender: FDA-Public Use
  Company Number: US-PFIZER INC-2013116665

PATIENT
  Age: 50 Year
  Sex: Male
  Weight: 81.63 kg

DRUGS (1)
  1. INLYTA [Suspect]
     Indication: RENAL CELL CARCINOMA
     Dosage: 5 MG, 2X/DAY
     Route: 048
     Dates: start: 20130206

REACTIONS (3)
  - Wound haemorrhage [Unknown]
  - Gait disturbance [Unknown]
  - Impaired healing [Unknown]
